FAERS Safety Report 5308429-4 (Version None)
Quarter: 2007Q2

REPORT INFORMATION
  Report Type: 
  Country: None (occurrence: None)
  Receive Date: 20070423
  Receipt Date: 20070423
  Transmission Date: 20071010
  Serious: Yes (Other)
  Sender: FDA-Public Use
  Company Number: None

PATIENT
  Sex: Female
  Weight: 16.3295 kg

DRUGS (4)
  1. ZYRTEC [Suspect]
     Indication: RASH SCARLATINIFORM
     Dosage: 1TSP  ONCE A DAY  PO
     Route: 048
     Dates: start: 20060826, end: 20060917
  2. ZYRTEC [Suspect]
     Indication: SEASONAL ALLERGY
     Dosage: 1TSP  ONCE A DAY  PO
     Route: 048
     Dates: start: 20060826, end: 20060917
  3. ZYRTEC [Suspect]
     Indication: RASH SCARLATINIFORM
     Dosage: 1TSP  ONCE A DAY  PO
     Route: 048
     Dates: start: 20070416, end: 20070420
  4. ZYRTEC [Suspect]
     Indication: SEASONAL ALLERGY
     Dosage: 1TSP  ONCE A DAY  PO
     Route: 048
     Dates: start: 20070416, end: 20070420

REACTIONS (6)
  - ABNORMAL BEHAVIOUR [None]
  - AGGRESSION [None]
  - ANGER [None]
  - EMOTIONAL DISORDER [None]
  - SCREAMING [None]
  - THINKING ABNORMAL [None]
